FAERS Safety Report 8305291-2 (Version None)
Quarter: 2012Q2

REPORT INFORMATION
  Report Type: 
  Country: None (occurrence: None)
  Receive Date: 20120423
  Receipt Date: 20120417
  Transmission Date: 20120825
  Serious: Yes (Hospitalization)
  Sender: FDA-Public Use
  Company Number: DE-TEVA-326320GER

PATIENT
  Sex: Female
  Weight: 94 kg

DRUGS (11)
  1. PASPERTIN [Concomitant]
     Dates: start: 20111214
  2. RAMIPRIL [Concomitant]
     Dates: start: 20120101
  3. BEVACIZUMAB [Suspect]
     Indication: BREAST CANCER
     Route: 042
     Dates: start: 20111123
  4. LENOGRASTIM [Concomitant]
     Dates: start: 20120113
  5. DOXORUBICIN HCL [Suspect]
     Indication: BREAST CANCER
     Route: 042
     Dates: start: 20111123
  6. DIMENHYDRINATE [Concomitant]
     Dates: start: 20120125
  7. APREPITANT [Concomitant]
     Dates: start: 20120125
  8. CARBOPLATIN [Suspect]
     Indication: BREAST CANCER
     Route: 042
     Dates: start: 20111123
  9. EPOGEN [Concomitant]
     Dates: start: 20120208
  10. ONDANSETRON [Concomitant]
     Dates: start: 20111214
  11. PACLITAXEL [Suspect]
     Indication: BREAST CANCER
     Route: 042
     Dates: start: 20111123

REACTIONS (1)
  - THROMBOSIS [None]
